FAERS Safety Report 13272994 (Version 1)
Quarter: 2017Q1

REPORT INFORMATION
  Report Type: Spontaneous
  Country: GB (occurrence: GB)
  Receive Date: 20170227
  Receipt Date: 20170227
  Transmission Date: 20170428
  Serious: Yes (Other)
  Sender: FDA-Public Use
  Company Number: GB-TEVA-742776ACC

PATIENT
  Age: 12 Year
  Sex: Female
  Weight: 40 kg

DRUGS (1)
  1. ERYTHROMYCIN. [Suspect]
     Active Substance: ERYTHROMYCIN
     Indication: TONSILLITIS
     Dosage: 20 ML DAILY;
     Route: 048
     Dates: start: 20170129

REACTIONS (2)
  - Back pain [Unknown]
  - Abdominal pain [Unknown]

NARRATIVE: CASE EVENT DATE: 20170201
